APPROVED DRUG PRODUCT: MIRABEGRON
Active Ingredient: MIRABEGRON
Strength: 50MG
Dosage Form/Route: TABLET, EXTENDED RELEASE;ORAL
Application: A218172 | Product #002 | TE Code: AB
Applicant: ASCENT PHARMACEUTICALS INC
Approved: Sep 24, 2025 | RLD: No | RS: No | Type: RX